FAERS Safety Report 4271241-1 (Version None)
Quarter: 2004Q1

REPORT INFORMATION
  Report Type: 
  Country: None (occurrence: None)
  Receive Date: 20040113
  Receipt Date: 20031229
  Transmission Date: 20041129
  Serious: No
  Sender: FDA-Public Use
  Company Number: 04H-163-0246077-00

PATIENT

DRUGS (1)
  1. MILRINONE LACTATE [Suspect]

REACTIONS (1)
  - CARDIAC DISORDER [None]
